FAERS Safety Report 15663273 (Version 1)
Quarter: 2018Q4

REPORT INFORMATION
  Report Type: Spontaneous
  Country: SI (occurrence: SI)
  Receive Date: 20181128
  Receipt Date: 20181128
  Transmission Date: 20190205
  Serious: Yes (Hospitalization)
  Sender: FDA-Public Use
  Company Number: SI-TEVA-2018-SI-978960

PATIENT
  Age: 51 Year
  Sex: Female

DRUGS (6)
  1. GEMCITABIN JGL [Concomitant]
  2. CODEINE [Concomitant]
     Active Substance: CODEINE
  3. ZALDIAR [Concomitant]
     Active Substance: ACETAMINOPHEN\TRAMADOL HYDROCHLORIDE
  4. REGLAN [Concomitant]
     Active Substance: METOCLOPRAMIDE HYDROCHLORIDE
  5. ORTANOL [Concomitant]
     Active Substance: OMEPRAZOLE
  6. BOPACATIN 10 MG/ML [Suspect]
     Active Substance: CARBOPLATIN
     Indication: OVARIAN CANCER
     Dosage: 10 MG/ML CONCENTRATE FOR SOLUTION FOR INFUSION
     Route: 042
     Dates: start: 20180822, end: 20181105

REACTIONS (3)
  - Acute respiratory failure [Unknown]
  - Abdominal pain upper [Unknown]
  - Dyspnoea [Unknown]

NARRATIVE: CASE EVENT DATE: 20181030
